FAERS Safety Report 4321174-7 (Version None)
Quarter: 2004Q1

REPORT INFORMATION
  Report Type: 
  Country: None (occurrence: None)
  Receive Date: 20040322
  Receipt Date: 20020909
  Transmission Date: 20041129
  Serious: Yes (Death, Hospitalization, Disabling)
  Sender: FDA-Public Use
  Company Number: WAES 0209USA01335

PATIENT
  Age: 74 Year
  Sex: Male
  Weight: 68 kg

DRUGS (18)
  1. VIOXX [Suspect]
     Indication: CHEST PAIN
     Route: 048
     Dates: start: 20000101, end: 20000909
  2. DARVOCET-N 100 [Concomitant]
  3. ASPIRIN [Concomitant]
  4. PLAVIX [Concomitant]
     Dates: start: 19990101
  5. VASOTEC [Concomitant]
     Route: 048
     Dates: start: 20000101
  6. IMDUR [Concomitant]
     Dates: start: 19990101, end: 20000701
  7. SYNTHROID [Concomitant]
     Indication: HYPOTHYROIDISM
     Dates: start: 19981201, end: 19990101
  8. SYNTHROID [Concomitant]
     Dates: start: 19990101, end: 19991101
  9. SYNTHROID [Concomitant]
     Dates: start: 20000701
  10. SYNTHROID [Concomitant]
     Dates: start: 20000101, end: 20000401
  11. LEVOTHROID [Concomitant]
     Dates: start: 19991101, end: 20000701
  12. ZESTRIL [Concomitant]
  13. NITROGLYCERIN [Concomitant]
     Dates: start: 19991101
  14. VIOXX [Suspect]
     Route: 048
     Dates: start: 20000106, end: 20000101
  15. VIOXX [Suspect]
     Indication: NON-CARDIAC CHEST PAIN
     Route: 048
     Dates: start: 20000106, end: 20000101
  16. VIOXX [Suspect]
     Route: 048
     Dates: start: 20000101, end: 20000909
  17. MYLICON [Concomitant]
     Indication: FLATULENCE
     Route: 048
     Dates: start: 20000101
  18. ZOCOR [Concomitant]
     Indication: PROPHYLAXIS
     Route: 048
     Dates: start: 19990101

REACTIONS (26)
  - ACCIDENTAL OVERDOSE [None]
  - ACUTE MYOCARDIAL INFARCTION [None]
  - ANGINA PECTORIS [None]
  - ANOREXIA [None]
  - ARRHYTHMIA SUPRAVENTRICULAR [None]
  - BRADYCARDIA [None]
  - CARDIAC FAILURE CONGESTIVE [None]
  - CARDIOGENIC SHOCK [None]
  - CAROTID ARTERY STENOSIS [None]
  - CHRONIC OBSTRUCTIVE AIRWAYS DISEASE [None]
  - CORONARY ARTERY DISEASE [None]
  - FATIGUE [None]
  - HAEMODYNAMIC INSTABILITY [None]
  - HEART RATE IRREGULAR [None]
  - HYPERTENSION [None]
  - MUSCLE CRAMP [None]
  - PALPITATIONS [None]
  - POST PROCEDURAL COMPLICATION [None]
  - POSTOPERATIVE INFECTION [None]
  - PULMONARY OEDEMA [None]
  - RALES [None]
  - RENAL FAILURE [None]
  - VENTRICULAR ARRHYTHMIA [None]
  - VENTRICULAR EXTRASYSTOLES [None]
  - WEIGHT DECREASED [None]
  - WOUND INFECTION STAPHYLOCOCCAL [None]
